FAERS Safety Report 9466916 (Version 1)
Quarter: 2013Q3

REPORT INFORMATION
  Report Type: Spontaneous
  Country: BR (occurrence: BR)
  Receive Date: 20130820
  Receipt Date: 20130820
  Transmission Date: 20140515
  Serious: Yes (Hospitalization, Other)
  Sender: FDA-Public Use
  Company Number: BR-PFIZER INC-2013239756

PATIENT
  Age: 62 Year
  Sex: Male

DRUGS (1)
  1. FRONTAL [Suspect]
     Indication: RELAXATION THERAPY
     Dosage: ONE OR TWO TABLETS OF 0.5MG DAILY
     Route: 048
     Dates: start: 20110816

REACTIONS (2)
  - Nosocomial infection [Unknown]
  - Lung neoplasm malignant [Unknown]
